FAERS Safety Report 8803014 (Version 1)
Quarter: 2012Q4

REPORT INFORMATION
  Report Type: Report from Study
  Country: US (occurrence: US)
  Receive Date: 20120924
  Receipt Date: 20120924
  Transmission Date: 20130627
  Serious: Yes (Other)
  Sender: FDA-Public Use
  Company Number: US-JNJFOC-20120906288

PATIENT
  Sex: Female
  Weight: 83.46 kg

DRUGS (1)
  1. REMICADE [Suspect]
     Indication: RHEUMATOID ARTHRITIS
     Route: 042
     Dates: start: 2006

REACTIONS (2)
  - Breast disorder [Not Recovered/Not Resolved]
  - Malaise [Not Recovered/Not Resolved]
